FAERS Safety Report 5590003-6 (Version None)
Quarter: 2008Q1

REPORT INFORMATION
  Report Type: 
  Country: None (occurrence: None)
  Receive Date: 20080114
  Receipt Date: 20061212
  Transmission Date: 20080703
  Serious: No
  Sender: FDA-Public Use
  Company Number: US-ABBOTT-05P-163-0319813-00

PATIENT
  Sex: Female
  Weight: 135 kg

DRUGS (10)
  1. OMNICEF [Suspect]
     Indication: BRONCHITIS
     Route: 048
     Dates: start: 20051215
  2. NOVOLOG [Concomitant]
     Indication: DIABETES MELLITUS
     Route: 058
  3. NOVOLOG [Concomitant]
     Route: 058
  4. CELECOXIB [Concomitant]
     Indication: DRUG USE FOR UNKNOWN INDICATION
     Route: 048
  5. LEVOTHYROXINE SODIUM [Concomitant]
     Indication: HYPOTHYROIDISM
     Route: 048
  6. TORSEMIDE [Concomitant]
     Indication: DIURETIC THERAPY
     Route: 048
  7. ASPIRIN [Concomitant]
     Indication: THROMBOSIS PROPHYLAXIS
     Route: 048
  8. LANSOPRAZOLE [Concomitant]
     Indication: GASTROOESOPHAGEAL REFLUX DISEASE
     Route: 048
  9. POTASSIUM [Concomitant]
     Indication: MINERAL SUPPLEMENTATION
     Route: 048
  10. LISINOPRIL [Concomitant]
     Indication: BLOOD PRESSURE INCREASED
     Route: 048

REACTIONS (1)
  - PHARYNGOLARYNGEAL DISCOMFORT [None]
